FAERS Safety Report 6190634-9 (Version None)
Quarter: 2009Q2

REPORT INFORMATION
  Report Type: 
  Country: None (occurrence: None)
  Receive Date: 20090514
  Receipt Date: 20090414
  Transmission Date: 20091009
  Serious: No
  Sender: FDA-Public Use
  Company Number: US-BRISTOL-MYERS SQUIBB COMPANY-14587109

PATIENT
  Age: 57 Year
  Sex: Female

DRUGS (4)
  1. IXEMPRA KIT [Suspect]
     Indication: BREAST CANCER METASTATIC
     Dosage: 1ST DOSE.
     Dates: start: 20090317
  2. RADIATION THERAPY [Suspect]
  3. BENADRYL [Concomitant]
     Indication: PREMEDICATION
  4. ATIVAN [Concomitant]
     Indication: PREMEDICATION

REACTIONS (1)
  - RASH [None]
